FAERS Safety Report 11032334 (Version 2)
Quarter: 2015Q2

REPORT INFORMATION
  Report Type: Spontaneous
  Country: JP (occurrence: JP)
  Receive Date: 20150415
  Receipt Date: 20150610
  Transmission Date: 20150821
  Serious: Yes (Hospitalization)
  Sender: FDA-Public Use
  Company Number: JP-ROCHE-1554491

PATIENT
  Age: 74 Year
  Sex: Female
  Weight: 66 kg

DRUGS (10)
  1. TEPRENONE [Concomitant]
     Active Substance: TEPRENONE
     Dosage: AMOUNT OF 1 ONCE ADMINISTRATION: 0.5 (UNIT UNCERTAINTY)
     Route: 048
  2. BRUFEN [Concomitant]
     Active Substance: IBUPROFEN
     Indication: SPINAL COMPRESSION FRACTURE
     Route: 048
     Dates: start: 201501
  3. NEXIUM [Concomitant]
     Active Substance: ESOMEPRAZOLE MAGNESIUM
     Route: 048
  4. DICLOFENAC [Concomitant]
     Active Substance: DICLOFENAC
     Indication: SPINAL COMPRESSION FRACTURE
     Dosage: AT THE PAIN
     Route: 054
     Dates: start: 201501
  5. BONVIVA [Suspect]
     Active Substance: IBANDRONATE SODIUM
     Indication: OSTEOPOROSIS
     Route: 042
     Dates: start: 20150217
  6. BIOFERMIN [Concomitant]
     Active Substance: BACILLUS SUBTILIS\LACTOBACILLUS ACIDOPHILUS\STREPTOCOCCUS FAECAIS
     Dosage: AMOUNT OF 1 ONCE ADMINISTRATION: 1 (UNIT UNCERTAINTY)
     Route: 048
  7. DICLOFENAC [Concomitant]
     Active Substance: DICLOFENAC
     Dosage: 2 SUPPOSITORY CAPSULES A DAY
     Route: 065
     Dates: start: 20150227, end: 20150316
  8. MICAMLO [Concomitant]
     Active Substance: AMLODIPINE BESYLATE\TELMISARTAN
     Route: 048
  9. GRIMAC [Concomitant]
     Dosage: AMOUNT OF 1 ONCE ADMINISTRATION: 0.5 (UNIT UNCERTAINTY)
     Route: 048
  10. BAYASPIRIN [Concomitant]
     Active Substance: ASPIRIN
     Route: 048

REACTIONS (3)
  - Performance status decreased [Recovering/Resolving]
  - Myalgia [Recovered/Resolved]
  - Back pain [Recovered/Resolved]

NARRATIVE: CASE EVENT DATE: 20150217
